FAERS Safety Report 15600909 (Version 2)
Quarter: 2018Q4

REPORT INFORMATION
  Report Type: Spontaneous
  Country: MX (occurrence: MX)
  Receive Date: 20181109
  Receipt Date: 20181115
  Transmission Date: 20190205
  Serious: Yes (Death)
  Sender: FDA-Public Use
  Company Number: MX-ROCHE-2213036

PATIENT
  Sex: Male

DRUGS (1)
  1. KADCYLA [Suspect]
     Active Substance: ADO-TRASTUZUMAB EMTANSINE
     Indication: GASTROOESOPHAGEAL CANCER
     Route: 065

REACTIONS (3)
  - Off label use [Fatal]
  - Cerebral haemorrhage [Fatal]
  - Intentional product use issue [Fatal]
